FAERS Safety Report 21544668 (Version 2)
Quarter: 2022Q4

REPORT INFORMATION
  Report Type: Report from Study
  Country: CN (occurrence: CN)
  Receive Date: 20221102
  Receipt Date: 20221123
  Transmission Date: 20230112
  Serious: Yes (Death, Hospitalization)
  Sender: FDA-Public Use
  Company Number: CN-KARYOPHARM-2022KPT001089

PATIENT
  Age: 62 Year
  Sex: Male
  Weight: 59.8 kg

DRUGS (10)
  1. SELINEXOR [Suspect]
     Active Substance: SELINEXOR
     Indication: Plasma cell myeloma
     Dosage: 100 MG, WEEKLY
     Route: 048
     Dates: start: 20220812, end: 20220908
  2. BORTEZOMIB [Suspect]
     Active Substance: BORTEZOMIB
     Indication: Plasma cell myeloma
     Dosage: 2.145 MG, WEEKLY
     Route: 058
     Dates: start: 20220812, end: 20220825
  3. DEXAMETHASONE [Suspect]
     Active Substance: DEXAMETHASONE
     Indication: Plasma cell myeloma
     Dosage: 20 MG, CYCLIC
     Route: 048
     Dates: start: 20220812, end: 20220909
  4. CELEBREX [Concomitant]
     Active Substance: CELECOXIB
  5. ONDANSETRON [Concomitant]
     Active Substance: ONDANSETRON
  6. APREPITANT [Concomitant]
     Active Substance: APREPITANT
  7. LACTULOSE [Concomitant]
     Active Substance: LACTULOSE
  8. ACYCLOVIR [Concomitant]
     Active Substance: ACYCLOVIR
  9. CALCAREA CARBONICA [Concomitant]
     Active Substance: OYSTER SHELL CALCIUM CARBONATE, CRUDE
  10. JU HONG TAN KE YE [Concomitant]

REACTIONS (2)
  - Pneumonia [Fatal]
  - Spinal cord compression [Unknown]

NARRATIVE: CASE EVENT DATE: 20220906
